FAERS Safety Report 17540794 (Version 1)
Quarter: 2020Q1

REPORT INFORMATION
  Report Type: Spontaneous
  Country: US (occurrence: US)
  Receive Date: 20200313
  Receipt Date: 20200313
  Transmission Date: 20200409
  Serious: No
  Sender: FDA-Public Use
  Company Number: US-NEUROCRINE BIOSCIENCES INC.-2020NBI00750

PATIENT
  Age: 77 Year
  Sex: Male
  Weight: 81.72 kg

DRUGS (1)
  1. INGREZZA [Suspect]
     Active Substance: VALBENAZINE
     Indication: TARDIVE DYSKINESIA
     Route: 048
     Dates: start: 20200221, end: 20200226

REACTIONS (5)
  - Drooling [Recovering/Resolving]
  - Confusional state [Recovering/Resolving]
  - Asthenia [Recovering/Resolving]
  - Therapeutic product effect decreased [Unknown]
  - Gait disturbance [Recovering/Resolving]

NARRATIVE: CASE EVENT DATE: 202002
